FAERS Safety Report 9204978 (Version 1)
Quarter: 2013Q2

REPORT INFORMATION
  Report Type: Spontaneous
  Country: US (occurrence: None)
  Receive Date: 20130401
  Receipt Date: 20130401
  Transmission Date: 20140414
  Serious: Yes (Other)
  Sender: FDA-Public Use
  Company Number: None

PATIENT
  Age: 41 Year
  Sex: Female
  Weight: 68.04 kg

DRUGS (1)
  1. MONISTAT [Suspect]
     Indication: FUNGAL INFECTION
     Dosage: 200MG PER APPLICATOR + CREAM 2X VAG
     Route: 067
     Dates: start: 20130325, end: 20130326

REACTIONS (3)
  - Application site pain [None]
  - Application site pruritus [None]
  - Rash generalised [None]
